FAERS Safety Report 9099037 (Version 2)
Quarter: 2013Q4

REPORT INFORMATION
  Report Type: Spontaneous
  Country: US (occurrence: US)
  Receive Date: 20130213
  Receipt Date: 20131009
  Transmission Date: 20140711
  Serious: Yes (Other)
  Sender: FDA-Public Use
  Company Number: US-PFIZER INC-2013054653

PATIENT
  Age: 23 Year
  Sex: Female

DRUGS (1)
  1. LO/OVRAL-28 [Suspect]
     Indication: CONTRACEPTION
     Dosage: UNK
     Route: 048
     Dates: start: 20101013

REACTIONS (5)
  - Drug ineffective [Unknown]
  - Unintended pregnancy [Unknown]
  - Anaemia [Unknown]
  - Abdominal pain [Unknown]
  - Postpartum depression [Unknown]
